FAERS Safety Report 16184686 (Version 1)
Quarter: 2019Q2

REPORT INFORMATION
  Report Type: Spontaneous
  Country: US (occurrence: US)
  Receive Date: 20190308
  Receipt Date: 20190308
  Transmission Date: 20190711
  Serious: No
  Sender: FDA-Public Use
  Company Number: None

PATIENT
  Age: 76 Year
  Sex: Female
  Weight: 74.84 kg

DRUGS (3)
  1. BABY ASPIRIN [Concomitant]
     Active Substance: ASPIRIN
  2. VALSARTAN HCTZ 160-25MG TAB [Suspect]
     Active Substance: HYDROCHLOROTHIAZIDE\VALSARTAN
     Indication: CARDIAC DISORDER
     Dosage: ?          OTHER STRENGTH:160-25 MG;QUANTITY:25 MG MILLIGRAM(S);?
     Route: 048
  3. COREG [Concomitant]
     Active Substance: CARVEDILOL

REACTIONS (6)
  - Abdominal pain upper [None]
  - Asthenia [None]
  - Loss of consciousness [None]
  - Chest pain [None]
  - Recalled product administered [None]
  - Syncope [None]
